FAERS Safety Report 21096033 (Version 6)
Quarter: 2025Q1

REPORT INFORMATION
  Report Type: Report from Study
  Country: US (occurrence: US)
  Receive Date: 20220718
  Receipt Date: 20250207
  Transmission Date: 20250408
  Serious: Yes (Hospitalization, Other)
  Sender: GLAXOSMITHKLINE
  Company Number: US-GSK-US2022106052

PATIENT

DRUGS (5)
  1. SOTROVIMAB [Suspect]
     Active Substance: SOTROVIMAB
     Indication: COVID-19
     Route: 064
     Dates: start: 20220224, end: 20220224
  2. PEPCID AC [Concomitant]
     Active Substance: FAMOTIDINE
     Indication: Product used for unknown indication
     Dosage: UNK UNK, BID
     Route: 064
     Dates: start: 20220201, end: 20220517
  3. DOXYLAMINE SUCCINATE [Concomitant]
     Active Substance: DOXYLAMINE SUCCINATE
     Indication: Product used for unknown indication
     Dosage: UNK UNK, QD
     Route: 064
     Dates: start: 20211012, end: 20220316
  4. ASPIRIN [Concomitant]
     Active Substance: ASPIRIN
     Indication: Product used for unknown indication
     Dosage: UNK UNK, QD
     Route: 064
     Dates: start: 20211012, end: 20220516
  5. SERTRALINE [Concomitant]
     Active Substance: SERTRALINE HYDROCHLORIDE
     Indication: Product used for unknown indication
     Dosage: UNK UNK, QD
     Route: 064
     Dates: start: 20210816

REACTIONS (6)
  - Neonatal dyspnoea [Recovered/Resolved]
  - Blood glucose decreased [Recovered/Resolved]
  - Croup infectious [Recovered/Resolved]
  - Otitis media acute [Recovered/Resolved]
  - COVID-19 [Recovered/Resolved]
  - Foetal exposure during pregnancy [Recovered/Resolved]

NARRATIVE: CASE EVENT DATE: 20220224
